FAERS Safety Report 24293920 (Version 1)
Quarter: 2024Q3

REPORT INFORMATION
  Report Type: Spontaneous
  Country: US (occurrence: None)
  Receive Date: 20240906
  Receipt Date: 20240906
  Transmission Date: 20241016
  Serious: No
  Sender: DOMPE FARMACEUTICI
  Company Number: US-FARMAPROD-202403-0862

PATIENT
  Sex: Female

DRUGS (2)
  1. OXERVATE [Suspect]
     Active Substance: CENEGERMIN-BKBJ
     Indication: Neurotrophic keratopathy
     Dates: start: 20240404
  2. OXERVATE [Suspect]
     Active Substance: CENEGERMIN-BKBJ

REACTIONS (4)
  - Product dose omission issue [Unknown]
  - Treatment noncompliance [Unknown]
  - Peripheral swelling [Unknown]
  - Eye pain [Unknown]
